FAERS Safety Report 23139718 (Version 1)
Quarter: 2023Q4

REPORT INFORMATION
  Report Type: Spontaneous
  Country: US (occurrence: None)
  Receive Date: 20231102
  Receipt Date: 20231102
  Transmission Date: 20240109
  Serious: Yes (unspecified)
  Sender: FDA-Public Use
  Company Number: None

PATIENT
  Age: 82 Year
  Sex: Male
  Weight: 85.5 kg

DRUGS (11)
  1. RINVOQ [Suspect]
     Active Substance: UPADACITINIB
     Indication: Rheumatoid arthritis
     Dates: start: 20200421, end: 20231031
  2. ATORVASTATIN [Concomitant]
     Active Substance: ATORVASTATIN
     Dates: start: 20200421
  3. FOLIC ACID [Concomitant]
     Active Substance: FOLIC ACID
     Dates: start: 20200421
  4. HYDRALAZINE [Concomitant]
     Active Substance: HYDRALAZINE HYDROCHLORIDE
     Dates: start: 20200421
  5. KRILL OIL [Concomitant]
     Active Substance: DIETARY SUPPLEMENT\KRILL OIL
     Dates: start: 20200421
  6. LASIX [Concomitant]
     Active Substance: FUROSEMIDE
     Dates: start: 20200421
  7. LOSARTAN [Concomitant]
     Active Substance: LOSARTAN
     Dates: start: 20231031
  8. METOPROLOL [Concomitant]
     Active Substance: METOPROLOL
     Dates: start: 20200421
  9. MAGNESIUM [Concomitant]
     Active Substance: MAGNESIUM
     Dates: start: 20200421
  10. OMEPRAZOLE [Concomitant]
     Active Substance: OMEPRAZOLE
     Dates: start: 20200421
  11. VITAMINS [Concomitant]
     Active Substance: VITAMINS
     Dates: start: 20200421

REACTIONS (1)
  - Cerebrovascular accident [None]

NARRATIVE: CASE EVENT DATE: 20231031
